FAERS Safety Report 6001022-X (Version None)
Quarter: 2008Q4

REPORT INFORMATION
  Report Type: 
  Country: None (occurrence: None)
  Receive Date: 20081215
  Receipt Date: 20080328
  Transmission Date: 20090506
  Serious: No
  Sender: FDA-Public Use
  Company Number: US-AMGEN-KDL268299

PATIENT
  Sex: Female

DRUGS (2)
  1. ENBREL [Suspect]
     Indication: PSORIATIC ARTHROPATHY
     Route: 058
     Dates: start: 20040401
  2. METHOTREXATE [Concomitant]
     Route: 048
     Dates: start: 19980101

REACTIONS (2)
  - HYPERSENSITIVITY [None]
  - TOOTH ABSCESS [None]
